FAERS Safety Report 5385403-3 (Version None)
Quarter: 2007Q3

REPORT INFORMATION
  Report Type: 
  Country: None (occurrence: None)
  Receive Date: 20070705
  Receipt Date: 20070705
  Transmission Date: 20080115
  Serious: Yes (Other)
  Sender: FDA-Public Use
  Company Number: None

PATIENT
  Age: 55 Year
  Sex: Female

DRUGS (1)
  1. CLIMARA PRO [Suspect]
     Dosage: APPLY 1 PATCH WEEKLY APPROX 2 MONTHS
     Route: 062

REACTIONS (1)
  - PHARMACEUTICAL PRODUCT COMPLAINT [None]
